FAERS Safety Report 6322876-3 (Version None)
Quarter: 2009Q3

REPORT INFORMATION
  Report Type: 
  Country: None (occurrence: None)
  Receive Date: 20090820
  Receipt Date: 20090813
  Transmission Date: 20100115
  Serious: Yes (Other)
  Sender: FDA-Public Use
  Company Number: 09US003186

PATIENT
  Age: 68 Year
  Sex: Female
  Weight: 79.4 kg

DRUGS (4)
  1. NITETIME FREE CHRY GHR LIQ 041 (PARACETAMOL33.333 MG/ML, DEXTROMETHORP [Suspect]
     Indication: COUGH
     Dosage: 30 ML, PRN, ORAL
     Route: 048
     Dates: start: 20090513, end: 20090811
  2. NITETIME FREE CHRY GHR LIQ 041 (PARACETAMOL33.333 MG/ML, DEXTROMETHORP [Suspect]
     Indication: NASOPHARYNGITIS
     Dosage: 30 ML, PRN, ORAL
     Route: 048
     Dates: start: 20090513, end: 20090811
  3. LIPITOR [Concomitant]
  4. OMEPRAZOLE [Concomitant]

REACTIONS (1)
  - DYSPNOEA [None]
